FAERS Safety Report 24035656 (Version 1)
Quarter: 2024Q3

REPORT INFORMATION
  Report Type: Spontaneous
  Country: US (occurrence: US)
  Receive Date: 20240701
  Receipt Date: 20240701
  Transmission Date: 20241016
  Serious: Yes (Hospitalization, Other)
  Sender: RECKITT BENCKISER
  Company Number: US-INDIVIOR US-INDV-145697-2024

PATIENT

DRUGS (4)
  1. SUBLOCADE [Suspect]
     Active Substance: BUPRENORPHINE
     Indication: Drug dependence
     Dosage: 300 MILLIGRAM, QMO
     Route: 058
  2. SUBLOCADE [Suspect]
     Active Substance: BUPRENORPHINE
  3. SUBLOCADE [Suspect]
     Active Substance: BUPRENORPHINE
     Indication: Drug dependence
     Dosage: 100 MILLIGRAM, QMO
     Route: 058
     Dates: start: 2022
  4. ZOLOFT [Concomitant]
     Active Substance: SERTRALINE HYDROCHLORIDE
     Indication: Depression
     Dosage: UNK
     Route: 065

REACTIONS (7)
  - Suicidal ideation [Recovered/Resolved]
  - Oesophageal carcinoma [Not Recovered/Not Resolved]
  - Gastric cancer [Not Recovered/Not Resolved]
  - Lymphadenopathy [Recovered/Resolved]
  - Urinary tract infection [Recovered/Resolved]
  - Dyspepsia [Not Recovered/Not Resolved]
  - Injection site induration [Not Recovered/Not Resolved]
